FAERS Safety Report 6173700-3 (Version None)
Quarter: 2009Q2

REPORT INFORMATION
  Report Type: 
  Country: None (occurrence: None)
  Receive Date: 20090430
  Receipt Date: 20090420
  Transmission Date: 20091009
  Serious: Yes (Other)
  Sender: FDA-Public Use
  Company Number: PHHY2009BR15272

PATIENT
  Sex: Male

DRUGS (8)
  1. EXELON [Suspect]
     Indication: MEMORY IMPAIRMENT
     Dosage: 9MG/5CM2 PATCH
     Route: 062
     Dates: start: 20090301
  2. EXELON [Suspect]
     Indication: ILLUSION
     Dosage: 18MG/10CM2
     Route: 062
     Dates: start: 20090415
  3. CARBIDOPA + LEVODOPA [Concomitant]
     Indication: PARKINSON'S DISEASE
     Dosage: 1/2 TABLET, TID
     Route: 048
  4. CARBIDOPA + LEVODOPA [Concomitant]
     Dosage: 1/2 TABLET, TID
  5. LORAX [Concomitant]
     Indication: INSOMNIA
     Dosage: 1/2 TABLET AT NIGHT
     Route: 048
  6. LORAX [Concomitant]
     Indication: SLEEP DISORDER
  7. SIMVACOR [Concomitant]
     Indication: BLOOD DISORDER
     Dosage: 10 MG, QD
     Route: 048
  8. TENORETIC 100 [Concomitant]
     Indication: HYPERTENSION
     Dosage: 50 MG, QD
     Route: 048

REACTIONS (9)
  - AGGRESSION [None]
  - BRONCHITIS [None]
  - CHEST DISCOMFORT [None]
  - CONDITION AGGRAVATED [None]
  - DELUSION [None]
  - DYSPNOEA [None]
  - ILLUSION [None]
  - NASOPHARYNGITIS [None]
  - PRODUCTIVE COUGH [None]
